FAERS Safety Report 6999320-6 (Version None)
Quarter: 2010Q3

REPORT INFORMATION
  Report Type: 
  Country: None (occurrence: None)
  Receive Date: 20100920
  Receipt Date: 20100517
  Transmission Date: 20110219
  Serious: Yes (Hospitalization)
  Sender: FDA-Public Use
  Company Number: US-ASTRAZENECA-2009SE17212

PATIENT
  Sex: Female

DRUGS (8)
  1. SEROQUEL [Suspect]
     Route: 048
     Dates: start: 20080101
  2. HYDROCHLOROTHIAZIDE [Concomitant]
  3. ZOLOFT [Concomitant]
  4. HYDROXYZINE [Concomitant]
  5. PREVACID [Concomitant]
  6. CLONIDINE [Concomitant]
  7. LEVOTHYROXINE [Concomitant]
     Indication: HYPOTHYROIDISM
  8. LOVASTATIN [Concomitant]
     Indication: HYPERLIPIDAEMIA

REACTIONS (2)
  - DIABETES WITH HYPEROSMOLARITY [None]
  - TYPE 1 DIABETES MELLITUS [None]
